FAERS Safety Report 24143359 (Version 2)
Quarter: 2024Q3

REPORT INFORMATION
  Report Type: Spontaneous
  Country: FR (occurrence: FR)
  Receive Date: 20240726
  Receipt Date: 20240801
  Transmission Date: 20241016
  Serious: Yes (Life-Threatening, Hospitalization, Other)
  Sender: MERCK
  Company Number: FR-MERCK-0511FRA00099

PATIENT
  Age: 69 Year
  Sex: Female

DRUGS (12)
  1. EMEND [Suspect]
     Active Substance: APREPITANT
     Indication: Prophylaxis of nausea and vomiting
     Dosage: 125 MG, QD
     Route: 048
     Dates: start: 20051117, end: 20051117
  2. EMEND [Suspect]
     Active Substance: APREPITANT
     Dosage: 80 MG, QD
     Route: 048
     Dates: start: 20051118, end: 20051119
  3. CISPLATIN [Suspect]
     Active Substance: CISPLATIN
     Indication: Uterine cancer
     Dosage: 25 MG/M2, QD
     Route: 042
     Dates: start: 20051117, end: 20051119
  4. IFOSFAMIDE [Suspect]
     Active Substance: IFOSFAMIDE
     Indication: Uterine cancer
     Dosage: 2.5 MG/M2, QD
     Route: 042
     Dates: start: 20051117, end: 20051119
  5. DOXORUBICIN [Suspect]
     Active Substance: DOXORUBICIN
     Indication: Uterine cancer
     Dosage: 25 MG/M2, QD
     Route: 042
     Dates: start: 20051117, end: 20051119
  6. FUROSEMIDE [Suspect]
     Active Substance: FUROSEMIDE
     Dosage: 40 MG, QD
     Route: 048
     Dates: start: 20051118, end: 20051118
  7. FUROSEMIDE [Suspect]
     Active Substance: FUROSEMIDE
     Dosage: 60 MG, UNK
     Route: 048
     Dates: start: 20051119, end: 20051119
  8. FUROSEMIDE [Suspect]
     Active Substance: FUROSEMIDE
     Dosage: 140 MG, UNK
     Route: 048
     Dates: start: 20051120, end: 20051120
  9. METHYLPREDNISOLONE [Suspect]
     Active Substance: METHYLPREDNISOLONE
     Indication: Prophylaxis of nausea and vomiting
     Dosage: 80 MG, UNK
     Dates: start: 20051117, end: 20051119
  10. METOCLOPRAMIDE [Concomitant]
     Active Substance: METOCLOPRAMIDE
     Indication: Prophylaxis of nausea and vomiting
     Dates: start: 20051117, end: 20051120
  11. GRANISETRON [Concomitant]
     Active Substance: GRANISETRON
     Indication: Prophylaxis of nausea and vomiting
     Dosage: 3 MG, BID
     Route: 042
     Dates: start: 20051117, end: 20051120
  12. LOSARTAN POTASSIUM [Concomitant]
     Active Substance: LOSARTAN POTASSIUM
     Indication: Hypertension
     Route: 048

REACTIONS (5)
  - Drug interaction [Recovered/Resolved]
  - Renal failure [Recovered/Resolved with Sequelae]
  - Myelosuppression [Recovered/Resolved]
  - Enterocolitis [Recovered/Resolved]
  - Gastrointestinal haemorrhage [Recovered/Resolved]

NARRATIVE: CASE EVENT DATE: 20051117
